FAERS Safety Report 23447830 (Version 2)
Quarter: 2024Q2

REPORT INFORMATION
  Report Type: Spontaneous
  Country: US (occurrence: US)
  Receive Date: 20240126
  Receipt Date: 20240402
  Transmission Date: 20240716
  Serious: No
  Sender: FDA-Public Use
  Company Number: US-Eisai-EC-2024-156135

PATIENT
  Age: 74 Year
  Sex: Female

DRUGS (3)
  1. LEQEMBI [Suspect]
     Active Substance: LECANEMAB-IRMB
     Indication: Product used for unknown indication
     Dosage: DOSE UNKNOWN
     Route: 042
     Dates: start: 2023, end: 20231005
  2. DONEPEZIL [Concomitant]
     Active Substance: DONEPEZIL
  3. MEMANTINE [Concomitant]
     Active Substance: MEMANTINE

REACTIONS (1)
  - Brain oedema [Not Recovered/Not Resolved]

NARRATIVE: CASE EVENT DATE: 20231121
